FAERS Safety Report 6463356-4 (Version None)
Quarter: 2009Q4

REPORT INFORMATION
  Report Type: 
  Country: None (occurrence: None)
  Receive Date: 20091130
  Receipt Date: 20090723
  Transmission Date: 20100525
  Serious: No
  Sender: FDA-Public Use
  Company Number: US-AMGEN-KDL296353

PATIENT
  Sex: Male
  Weight: 77.2 kg

DRUGS (6)
  1. ENBREL [Suspect]
     Indication: RHEUMATOID ARTHRITIS
     Route: 058
     Dates: start: 20080321
  2. METHOTREXATE [Concomitant]
     Dates: start: 20050101
  3. FOLIC ACID [Concomitant]
     Dates: start: 20050101
  4. GLUCOPHAGE [Concomitant]
     Dates: start: 20050101
  5. HUMULIN R [Concomitant]
     Dates: start: 20080101
  6. MOBIC [Concomitant]

REACTIONS (2)
  - INJECTION SITE PAIN [None]
  - RHEUMATOID ARTHRITIS [None]
